FAERS Safety Report 9617619 (Version 1)
Quarter: 2013Q4

REPORT INFORMATION
  Report Type: Spontaneous
  Country: US (occurrence: US)
  Receive Date: 20131011
  Receipt Date: 20131011
  Transmission Date: 20140711
  Serious: Yes (Hospitalization)
  Sender: FDA-Public Use
  Company Number: US-BRISTOL-MYERS SQUIBB COMPANY-19526540

PATIENT
  Age: 62 Year
  Sex: Male

DRUGS (1)
  1. BYETTA [Suspect]
     Indication: DIABETES MELLITUS
     Dosage: 10MCG DAILY:1NOV05-22JAN08?250MCG/ML,10 UNIT BID:13MAR08-17JUL08?5MCG BID:17JAN09-23APR09
     Dates: start: 20051101

REACTIONS (5)
  - Papillary thyroid cancer [Unknown]
  - Salivary gland neoplasm [Unknown]
  - Laryngeal disorder [Unknown]
  - Arthralgia [Unknown]
  - Tinnitus [Unknown]
